FAERS Safety Report 7817651 (Version 9)
Quarter: 2015Q2

REPORT INFORMATION
  Report Type: Spontaneous
  Country: US (occurrence: US)
  Receive Date: 20110217
  Receipt Date: 20150610
  Transmission Date: 20150821
  Serious: Yes (Hospitalization, Other)
  Sender: FDA-Public Use
  Company Number: US-ASTRAZENECA-2010SE28055

PATIENT
  Age: 54 Year
  Sex: Female
  Weight: 86.2 kg

DRUGS (34)
  1. NEXIUM [Suspect]
     Active Substance: ESOMEPRAZOLE MAGNESIUM
     Indication: GASTROOESOPHAGEAL REFLUX DISEASE
     Route: 048
     Dates: start: 2005
  2. NEXIUM [Suspect]
     Active Substance: ESOMEPRAZOLE MAGNESIUM
     Indication: GASTROOESOPHAGEAL REFLUX DISEASE
     Route: 048
     Dates: start: 2007
  3. NEXIUM [Suspect]
     Active Substance: ESOMEPRAZOLE MAGNESIUM
     Indication: GASTROOESOPHAGEAL REFLUX DISEASE
     Route: 048
     Dates: start: 2007
  4. CRESTOR [Suspect]
     Active Substance: ROSUVASTATIN CALCIUM
     Indication: BLOOD CHOLESTEROL INCREASED
     Route: 048
     Dates: start: 2005
  5. AMITRIPTYLINE [Concomitant]
     Active Substance: AMITRIPTYLINE
     Indication: SLEEP DISORDER
     Route: 048
     Dates: start: 1980
  6. DIAZEPAM. [Concomitant]
     Active Substance: DIAZEPAM
     Indication: ANXIETY
     Route: 048
     Dates: start: 1981
  7. NEXIUM [Suspect]
     Active Substance: ESOMEPRAZOLE MAGNESIUM
     Indication: GASTROOESOPHAGEAL REFLUX DISEASE
     Route: 048
     Dates: start: 2005
  8. CRESTOR [Suspect]
     Active Substance: ROSUVASTATIN CALCIUM
     Indication: BLOOD CHOLESTEROL INCREASED
     Route: 048
  9. FARXIGA [Suspect]
     Active Substance: DAPAGLIFLOZIN PROPANEDIOL
     Indication: TYPE 2 DIABETES MELLITUS
     Route: 048
  10. SOMA [Concomitant]
     Active Substance: CARISOPRODOL
     Indication: MUSCLE SPASMS
     Route: 048
     Dates: start: 1980
  11. B COMPLEX WITH FOLIC ACID, VIT C AND B12 [Concomitant]
     Indication: SUPPLEMENTATION THERAPY
     Dosage: 3 TABS DAILY
     Route: 048
     Dates: start: 1985
  12. PRENATAL PLUS B [Concomitant]
     Indication: VITAMIN SUPPLEMENTATION
     Dosage: DAILY
     Route: 048
     Dates: start: 1985
  13. NEXIUM [Suspect]
     Active Substance: ESOMEPRAZOLE MAGNESIUM
     Indication: DYSPEPSIA
     Route: 048
     Dates: start: 2007
  14. NEXIUM [Suspect]
     Active Substance: ESOMEPRAZOLE MAGNESIUM
     Indication: GASTROOESOPHAGEAL REFLUX DISEASE
     Dosage: 40 MG DAILY, SOMETIMES TAKES 2 CAPSULES
     Route: 048
     Dates: start: 201411
  15. FARXIGA [Suspect]
     Active Substance: DAPAGLIFLOZIN PROPANEDIOL
     Indication: TYPE 2 DIABETES MELLITUS
     Route: 048
     Dates: start: 20150322
  16. DIAZEPAM. [Concomitant]
     Active Substance: DIAZEPAM
     Indication: TREMOR
     Route: 048
     Dates: start: 1981
  17. OMEGA [Concomitant]
     Active Substance: CONVALLARIA MAJALIS\CRATAEGUS LAEVIGATA LEAF\PROXYPHYLLINE
  18. NEXIUM [Suspect]
     Active Substance: ESOMEPRAZOLE MAGNESIUM
     Indication: DYSPEPSIA
     Route: 048
     Dates: start: 2005
  19. NEXIUM [Suspect]
     Active Substance: ESOMEPRAZOLE MAGNESIUM
     Indication: DYSPEPSIA
     Dosage: 40 MG DAILY, SOMETIMES TAKES 2 CAPSULES
     Route: 048
     Dates: start: 201411
  20. CRESTOR [Suspect]
     Active Substance: ROSUVASTATIN CALCIUM
     Indication: BLOOD CHOLESTEROL INCREASED
     Route: 048
     Dates: start: 2008
  21. ONGLYZA [Suspect]
     Active Substance: SAXAGLIPTIN HYDROCHLORIDE
     Indication: TYPE 2 DIABETES MELLITUS
     Route: 048
  22. SOMA [Concomitant]
     Active Substance: CARISOPRODOL
     Indication: GASTRIC DISORDER
     Route: 048
     Dates: start: 1980
  23. FISH OIL [Concomitant]
     Active Substance: FISH OIL
     Indication: SUPPLEMENTATION THERAPY
     Dosage: 1200/360MG DAILY
     Route: 048
  24. CRESTOR [Suspect]
     Active Substance: ROSUVASTATIN CALCIUM
     Indication: BLOOD CHOLESTEROL INCREASED
     Route: 048
     Dates: start: 201411
  25. FARXIGA [Suspect]
     Active Substance: DAPAGLIFLOZIN PROPANEDIOL
     Indication: TYPE 2 DIABETES MELLITUS
     Route: 048
  26. METFORMIN [Suspect]
     Active Substance: METFORMIN HYDROCHLORIDE
     Indication: DIABETES MELLITUS
     Dosage: NON AZ PRODUCT, 500 MG TWO TIMES A DAY
     Route: 048
     Dates: start: 2014
  27. VALIUM [Concomitant]
     Active Substance: DIAZEPAM
     Dosage: EVERY 4 TO 6 HOURS AS NEEDED
  28. FARXIGA [Suspect]
     Active Substance: DAPAGLIFLOZIN PROPANEDIOL
     Indication: TYPE 2 DIABETES MELLITUS
     Route: 048
  29. AMITRIPTYLINE [Concomitant]
     Active Substance: AMITRIPTYLINE
     Indication: ANXIETY
     Route: 048
     Dates: start: 1980
  30. LEVOTHYROXINE [Concomitant]
     Active Substance: LEVOTHYROXINE
     Indication: STEROID THERAPY
     Route: 048
     Dates: start: 201502
  31. NEXIUM [Suspect]
     Active Substance: ESOMEPRAZOLE MAGNESIUM
     Indication: GASTROOESOPHAGEAL REFLUX DISEASE
     Dosage: 40 MG DAILY, SOMETIMES TAKES 2 CAPSULES
     Route: 048
     Dates: start: 201411
  32. CRESTOR [Suspect]
     Active Substance: ROSUVASTATIN CALCIUM
     Indication: BLOOD CHOLESTEROL INCREASED
     Route: 048
     Dates: start: 2000, end: 2005
  33. ASPIRIN. [Concomitant]
     Active Substance: ASPIRIN
     Indication: CARDIAC DISORDER
     Route: 048
  34. FLUTICASONE [Concomitant]
     Active Substance: FLUTICASONE\FLUTICASONE PROPIONATE
     Indication: STEROID THERAPY
     Dosage: 50 MCG HCT 16 G ONE SPRAY IN EACH NOSTRIL DAILY
     Route: 045
     Dates: start: 201502

REACTIONS (34)
  - Type 2 diabetes mellitus [Not Recovered/Not Resolved]
  - Dizziness [Unknown]
  - Drug withdrawal syndrome [Unknown]
  - Multiple fractures [Unknown]
  - Intentional product misuse [Unknown]
  - Asthenia [Unknown]
  - Skin lesion [Unknown]
  - Tooth disorder [Not Recovered/Not Resolved]
  - Abnormal faeces [Unknown]
  - Gastrooesophageal reflux disease [Unknown]
  - Diarrhoea [Not Recovered/Not Resolved]
  - Off label use [Unknown]
  - Hypophagia [Unknown]
  - Arthralgia [Unknown]
  - Influenza [Unknown]
  - Upper respiratory tract infection [Unknown]
  - Weight increased [Unknown]
  - Weight decreased [Unknown]
  - Adverse event [Unknown]
  - Bronchitis [Unknown]
  - Laziness [Unknown]
  - Thyroid function test abnormal [Unknown]
  - Lower extremity mass [Unknown]
  - Mental disorder [Unknown]
  - Rash pruritic [Unknown]
  - Drug dose omission [Unknown]
  - Multi-organ disorder [Unknown]
  - Limb injury [Unknown]
  - Drug ineffective [Unknown]
  - Fall [Unknown]
  - Lymphoma [Unknown]
  - Intervertebral disc protrusion [Unknown]
  - Fatigue [Unknown]
  - Depressed mood [Unknown]

NARRATIVE: CASE EVENT DATE: 2011
